FAERS Safety Report 6878699-X (Version None)
Quarter: 2010Q3

REPORT INFORMATION
  Report Type: 
  Country: None (occurrence: None)
  Receive Date: 20100728
  Receipt Date: 20100721
  Transmission Date: 20110219
  Serious: Yes (Other)
  Sender: FDA-Public Use
  Company Number: B0667191A

PATIENT
  Age: 50 Year
  Sex: Female

DRUGS (3)
  1. SERETIDE [Suspect]
     Indication: ASTHMA
     Dosage: 1PUFF TWICE PER DAY
     Route: 055
     Dates: start: 20100501, end: 20100601
  2. UNKNOWN MEDICATION [Concomitant]
  3. VENTOLIN [Concomitant]

REACTIONS (4)
  - ASTHMA [None]
  - DIZZINESS [None]
  - HEADACHE [None]
  - PAIN [None]
